FAERS Safety Report 6155054-1 (Version None)
Quarter: 2009Q2

REPORT INFORMATION
  Report Type: 
  Country: None (occurrence: None)
  Receive Date: 20090410
  Receipt Date: 20090402
  Transmission Date: 20091009
  Serious: Yes (Death)
  Sender: FDA-Public Use
  Company Number: GXKR2009GB04248

PATIENT

DRUGS (2)
  1. BUMETANIDE [Suspect]
  2. VALSARTAN [Suspect]

REACTIONS (1)
  - RENAL FAILURE [None]
